FAERS Safety Report 4561030-2 (Version None)
Quarter: 2005Q1

REPORT INFORMATION
  Report Type: 
  Country: None (occurrence: None)
  Receive Date: 20050126
  Receipt Date: 20040825
  Transmission Date: 20050727
  Serious: No
  Sender: FDA-Public Use
  Company Number: US-BRISTOL-MYERS SQUIBB COMPANY-12682522

PATIENT
  Age: 67 Year
  Sex: Female
  Weight: 68 kg

DRUGS (7)
  1. GLUCOPHAGE [Suspect]
     Indication: DIABETES MELLITUS
     Route: 048
  2. ALLEGRA [Concomitant]
  3. CELEBREX [Concomitant]
  4. TRICOR [Concomitant]
  5. EVISTA [Concomitant]
  6. LOTREL [Concomitant]
  7. ULTRACET [Concomitant]

REACTIONS (2)
  - NAUSEA [None]
  - VOMITING [None]
